FAERS Safety Report 11401992 (Version 1)
Quarter: 2015Q3

REPORT INFORMATION
  Report Type: Spontaneous
  Country: US (occurrence: None)
  Receive Date: 20150820
  Receipt Date: 20150820
  Transmission Date: 20151125
  Serious: Yes (Hospitalization)
  Sender: FDA-Public Use
  Company Number: None

PATIENT
  Age: 73 Year
  Sex: Female

DRUGS (8)
  1. SPIRONOLACTONE. [Concomitant]
     Active Substance: SPIRONOLACTONE
  2. AMLODIPINE [Concomitant]
     Active Substance: AMLODIPINE BESYLATE
  3. MONTELUKAST [Concomitant]
     Active Substance: MONTELUKAST SODIUM
  4. AMOXICILLIN 250 MG SANDOZ [Suspect]
     Active Substance: AMOXICILLIN
     Indication: INFECTION
     Route: 048
     Dates: start: 20150817, end: 20150818
  5. FENOFIBRATE. [Concomitant]
     Active Substance: FENOFIBRATE
  6. LOSARTAN/HCTZ [Concomitant]
     Active Substance: HYDROCHLOROTHIAZIDE\LOSARTAN
  7. PANTOPRAZOLE [Concomitant]
     Active Substance: PANTOPRAZOLE SODIUM
  8. METOPROLOL [Concomitant]
     Active Substance: METOPROLOL

REACTIONS (5)
  - No reaction on previous exposure to drug [None]
  - Mouth swelling [None]
  - Swollen tongue [None]
  - Loss of consciousness [None]
  - Lip swelling [None]

NARRATIVE: CASE EVENT DATE: 20150818
